FAERS Safety Report 9691413 (Version 3)
Quarter: 2013Q4

REPORT INFORMATION
  Report Type: Spontaneous
  Country: BR (occurrence: BR)
  Receive Date: 20131115
  Receipt Date: 20131212
  Transmission Date: 20140711
  Serious: Yes (Hospitalization, Other)
  Sender: FDA-Public Use
  Company Number: PHHY2013BR130709

PATIENT
  Age: 12 Year
  Sex: Male
  Weight: 34 kg

DRUGS (5)
  1. TRILEPTAL [Suspect]
     Indication: CONVULSION
     Dosage: 2 DF, DAILY
     Route: 048
  2. TOPIRAMATE [Suspect]
     Indication: CONVULSION
     Dosage: 100 MG, DAILY(2 TABLETS OF 50 MG, DAILY)
     Route: 048
  3. TOPIRAMATE [Suspect]
     Dosage: 50 MG, DAILY ( 2 TABLETS OF 25 MG, DAILY)
     Route: 048
  4. TOPIRAMATE [Suspect]
     Dosage: 200 MG, DAILY (2 TABLETS OF 100 MG, DAILY)
     Route: 048
  5. FRISIUM [Suspect]
     Indication: CONVULSION
     Dosage: 1DF, DAILY
     Route: 048

REACTIONS (2)
  - Headache [Recovered/Resolved]
  - Malignant neoplasm progression [Unknown]
